FAERS Safety Report 9403554 (Version 1)
Quarter: 2013Q3

REPORT INFORMATION
  Report Type: Spontaneous
  Country: US (occurrence: US)
  Receive Date: 20130717
  Receipt Date: 20130717
  Transmission Date: 20140515
  Serious: No
  Sender: FDA-Public Use
  Company Number: US-009507513-1307USA002375

PATIENT
  Age: 73 Year
  Sex: Male

DRUGS (1)
  1. DULERA [Suspect]
     Indication: CHRONIC OBSTRUCTIVE PULMONARY DISEASE
     Dosage: 1 PUFF PER DAY
     Route: 055
     Dates: start: 201305

REACTIONS (4)
  - Dysphonia [Not Recovered/Not Resolved]
  - Drug effect decreased [Unknown]
  - Product taste abnormal [Unknown]
  - Dysphonia [Unknown]
